FAERS Safety Report 9262456 (Version 2)
Quarter: 2014Q1

REPORT INFORMATION
  Report Type: Spontaneous
  Country: US (occurrence: US)
  Receive Date: 20130430
  Receipt Date: 20140205
  Transmission Date: 20141002
  Serious: Yes (Hospitalization, Other)
  Sender: FDA-Public Use
  Company Number: US-BAYER-2013-050695

PATIENT
  Age: 19 Year
  Sex: Female
  Weight: 56.69 kg

DRUGS (1)
  1. MIRENA [Suspect]
     Indication: CONTRACEPTION
     Dosage: 20 MCG/24HR, CONT
     Route: 015
     Dates: start: 20110331, end: 20111014

REACTIONS (9)
  - Uterine perforation [None]
  - Device breakage [None]
  - Complication of device removal [None]
  - Mood swings [None]
  - Acne [None]
  - Injury [None]
  - Pain [None]
  - Emotional distress [None]
  - Device issue [None]
